FAERS Safety Report 17110467 (Version 1)
Quarter: 2019Q4

REPORT INFORMATION
  Report Type: Spontaneous
  Country: IT (occurrence: IT)
  Receive Date: 20191204
  Receipt Date: 20191204
  Transmission Date: 20200122
  Serious: Yes (Life-Threatening)
  Sender: FDA-Public Use
  Company Number: IT-PFIZER INC-2019521321

PATIENT
  Age: 75 Year
  Sex: Female

DRUGS (1)
  1. IRINOTECAN HCL [Suspect]
     Active Substance: IRINOTECAN HYDROCHLORIDE
     Indication: COLON CANCER
     Dosage: 100 MG, CYCLIC
     Dates: start: 20191023, end: 20191113

REACTIONS (1)
  - Ileal perforation [Recovered/Resolved with Sequelae]

NARRATIVE: CASE EVENT DATE: 20191113
